FAERS Safety Report 8543423-1 (Version None)
Quarter: 2012Q3

REPORT INFORMATION
  Report Type: 
  Country: None (occurrence: None)
  Receive Date: 20120727
  Receipt Date: 20120724
  Transmission Date: 20120928
  Serious: Yes (Other)
  Sender: FDA-Public Use
  Company Number: BR-PFIZER INC-2012180012

PATIENT
  Age: 50 Year
  Sex: Female

DRUGS (4)
  1. ALPRAZOLAM [Suspect]
     Indication: SLEEP DISORDER
     Dosage: 1 MG (ONE TABLET), 1X/DAY AS NEEDED
     Route: 048
     Dates: start: 20120324
  2. ALPRAZOLAM [Suspect]
     Indication: BIPOLAR DISORDER
  3. ALPRAZOLAM [Suspect]
     Indication: STRESS
  4. LEXAPRO [Concomitant]
     Dosage: 5 MG (HALF TABLET OF 10MG), 1X/DAY

REACTIONS (4)
  - DEPERSONALISATION [None]
  - STRESS [None]
  - INSOMNIA [None]
  - MALAISE [None]
